FAERS Safety Report 6647571-2 (Version None)
Quarter: 2010Q1

REPORT INFORMATION
  Report Type: 
  Country: None (occurrence: None)
  Receive Date: 20100323
  Receipt Date: 20100315
  Transmission Date: 20100710
  Serious: Yes (Hospitalization)
  Sender: FDA-Public Use
  Company Number: US-AMGEN-QUU392064

PATIENT
  Sex: Female
  Weight: 113 kg

DRUGS (6)
  1. NPLATE [Suspect]
     Indication: IDIOPATHIC THROMBOCYTOPENIC PURPURA
     Route: 058
     Dates: start: 20090507, end: 20090922
  2. CORTICOSTEROIDS [Concomitant]
     Dates: start: 20071001
  3. PREMARIN [Concomitant]
  4. PREDNISONE [Concomitant]
  5. METOPROLOL [Concomitant]
  6. TIZANIDINE HCL [Concomitant]

REACTIONS (2)
  - THERAPEUTIC RESPONSE DECREASED [None]
  - THROMBOCYTOPENIA [None]
